FAERS Safety Report 9433944 (Version 3)
Quarter: 2014Q1

REPORT INFORMATION
  Report Type: Report from Study
  Country: DE (occurrence: DE)
  Receive Date: 20130801
  Receipt Date: 20140226
  Transmission Date: 20141002
  Serious: Yes (Hospitalization)
  Sender: FDA-Public Use
  Company Number: DE-AMGEN-DEUCT2013053728

PATIENT
  Age: 83 Year
  Sex: Female

DRUGS (11)
  1. ETANERCEPT [Suspect]
     Indication: RHEUMATOID ARTHRITIS
     Dosage: 50 MG, WEEKLY
     Route: 065
  2. METHOTREXATE SODIUM [Concomitant]
     Dosage: 15 MG, WEEKLY
  3. CAPTOHEXAL [Concomitant]
     Dosage: UNK
  4. FERRO SANOL DUODENAL [Concomitant]
     Dosage: UNK
  5. SIMVASTATIN [Concomitant]
     Dosage: UNK
  6. PANTOZOL                           /01263204/ [Concomitant]
     Dosage: UNK
  7. METFORMIN [Concomitant]
     Dosage: UNK
  8. FOLSAN [Concomitant]
     Dosage: UNK
  9. IDEOS [Concomitant]
     Dosage: UNK
  10. VIANI [Concomitant]
     Dosage: UNK
  11. DECORTIN [Concomitant]
     Dosage: UNK

REACTIONS (4)
  - Weight decreased [Not Recovered/Not Resolved]
  - Nausea [Not Recovered/Not Resolved]
  - Vomiting [Not Recovered/Not Resolved]
  - Rotator cuff syndrome [Not Recovered/Not Resolved]
